FAERS Safety Report 23334315 (Version 2)
Quarter: 2024Q1

REPORT INFORMATION
  Report Type: Spontaneous
  Country: JP (occurrence: JP)
  Receive Date: 20231223
  Receipt Date: 20240122
  Transmission Date: 20240410
  Serious: No
  Sender: FDA-Public Use
  Company Number: JP-GENMAB-2023-02407

PATIENT
  Age: 79 Year
  Sex: Male

DRUGS (4)
  1. EPKINLY [Suspect]
     Active Substance: EPCORITAMAB-BYSP
     Indication: Diffuse large B-cell lymphoma
     Dosage: UNK, SINGLE, FIRST ADMINISTRATION IN CYCLE1
     Dates: start: 20231127, end: 20231127
  2. EPKINLY [Suspect]
     Active Substance: EPCORITAMAB-BYSP
     Dosage: UNK, SINGLE, SECOND ADMINISTRATION IN CYCLE1
     Dates: start: 20231204, end: 20231204
  3. EPKINLY [Suspect]
     Active Substance: EPCORITAMAB-BYSP
     Dosage: 48 MILLIGRAM, WEEKLY, CYCLE 1
     Dates: start: 20231211, end: 20231218
  4. EPKINLY [Suspect]
     Active Substance: EPCORITAMAB-BYSP
     Dosage: 48 MILLIGRAM, WEEKLY, CYCLE2
     Dates: start: 20231225

REACTIONS (1)
  - Neutrophil count decreased [Recovered/Resolved]
